FAERS Safety Report 24035425 (Version 2)
Quarter: 2024Q3

REPORT INFORMATION
  Report Type: Spontaneous
  Country: GB (occurrence: GB)
  Receive Date: 20240701
  Receipt Date: 20240911
  Transmission Date: 20241017
  Serious: Yes (Other)
  Sender: TEVA
  Company Number: None

PATIENT
  Age: 64 Year
  Sex: Female
  Weight: 112.5 kg

DRUGS (5)
  1. DOXYCYCLINE [Suspect]
     Active Substance: DOXYCYCLINE\DOXYCYCLINE HYCLATE
     Indication: Lower respiratory tract infection
     Dosage: ONE TO BE TAKEN TWICE A DAY
     Route: 065
     Dates: start: 20231227
  2. COMIRNATY (RAXTOZINAMERAN) [Concomitant]
     Active Substance: RAXTOZINAMERAN
     Indication: Product used for unknown indication
     Route: 030
     Dates: start: 20231031
  3. AMOXICILLIN [Concomitant]
     Active Substance: AMOXICILLIN
     Indication: Product used for unknown indication
     Dosage: TIME INTERVAL: 0.33333333 DAYS: TWO TO BE TAKEN THREE TIMES A DAY
     Route: 065
     Dates: start: 20231227
  4. HYDROXOCOBALAMIN [Concomitant]
     Active Substance: HYDROXOCOBALAMIN
     Indication: Adverse drug reaction
     Route: 065
     Dates: start: 20231214
  5. CLARITHROMYCIN [Concomitant]
     Active Substance: CLARITHROMYCIN
     Indication: Product used for unknown indication
     Dosage: ONE TO BE TAKEN TWICE A DAY
     Route: 065
     Dates: start: 20231219

REACTIONS (2)
  - Dyspnoea at rest [Recovered/Resolved]
  - Erythema [Recovered/Resolved]

NARRATIVE: CASE EVENT DATE: 20231227
